FAERS Safety Report 12237703 (Version 1)
Quarter: 2016Q2

REPORT INFORMATION
  Report Type: Spontaneous
  Country: US (occurrence: None)
  Receive Date: 20160404
  Receipt Date: 20160404
  Transmission Date: 20160815
  Serious: Yes (Other)
  Sender: FDA-Public Use
  Company Number: None

PATIENT
  Age: 69 Year
  Sex: Female
  Weight: 69.4 kg

DRUGS (19)
  1. AP LANC-DEL [Concomitant]
  2. KRILL [Concomitant]
  3. CALCIUM + D3 [Concomitant]
     Active Substance: CALCIUM\CHOLECALCIFEROL
  4. MELATONIN [Concomitant]
     Active Substance: MELATONIN
  5. BENADRYL [Suspect]
     Active Substance: DIPHENHYDRAMINE HYDROCHLORIDE
     Indication: PRURITUS
     Dosage: 11111 YEARS, 11111 MONTHS TAKEN BY MOUTH
     Route: 048
  6. LUTEIN [Concomitant]
     Active Substance: LUTEIN
  7. YEAST EXTRACT [Concomitant]
     Active Substance: YEAST
  8. METFORMIN [Concomitant]
     Active Substance: METFORMIN HYDROCHLORIDE
  9. VERIO IQ STRIPS [Concomitant]
  10. GABAPENTIN. [Concomitant]
     Active Substance: GABAPENTIN
  11. TRAZODONE [Concomitant]
     Active Substance: TRAZODONE HYDROCHLORIDE
  12. LISINOPRIL. [Concomitant]
     Active Substance: LISINOPRIL
  13. FLUOXETINE [Concomitant]
     Active Substance: FLUOXETINE HYDROCHLORIDE
  14. BG VERIO IQ MISC MONITOR [Concomitant]
  15. CINNAMON. [Concomitant]
     Active Substance: CINNAMON
  16. MULTI-VITAMIN/MINERAL [Concomitant]
  17. ASPIRIN. [Concomitant]
     Active Substance: ASPIRIN
  18. LOVASTATIN. [Concomitant]
     Active Substance: LOVASTATIN
  19. GUAIFENESIN. [Concomitant]
     Active Substance: GUAIFENESIN

REACTIONS (10)
  - Balance disorder [None]
  - Mental impairment [None]
  - Tremor [None]
  - Fall [None]
  - Gait disturbance [None]
  - Asthenia [None]
  - Headache [None]
  - Altered state of consciousness [None]
  - Fatigue [None]
  - Hepatic enzyme increased [None]

NARRATIVE: CASE EVENT DATE: 20160217
